FAERS Safety Report 13638131 (Version 1)
Quarter: 2017Q2

REPORT INFORMATION
  Report Type: Spontaneous
  Country: US (occurrence: US)
  Receive Date: 20170609
  Receipt Date: 20170609
  Transmission Date: 20170830
  Serious: Yes (Other)
  Sender: FDA-Public Use
  Company Number: US-009507513-1706USA002260

PATIENT
  Age: 74 Year
  Sex: Female

DRUGS (4)
  1. VALIUM [Concomitant]
     Active Substance: DIAZEPAM
     Dosage: 5 MG, TID
  2. FIORICET [Concomitant]
     Active Substance: ACETAMINOPHEN\BUTALBITAL\CAFFEINE
  3. ATENOLOL. [Concomitant]
     Active Substance: ATENOLOL
     Dosage: 1.25 MG, QD
  4. FOSAMAX [Suspect]
     Active Substance: ALENDRONATE SODIUM
     Indication: OSTEOPOROSIS PROPHYLAXIS
     Dosage: UNK
     Route: 048
     Dates: start: 200906, end: 201406

REACTIONS (3)
  - Osteonecrosis of jaw [Unknown]
  - Malpositioned teeth [Recovered/Resolved]
  - Joint dislocation [Recovered/Resolved]

NARRATIVE: CASE EVENT DATE: 20170515
